FAERS Safety Report 9556435 (Version 1)
Quarter: 2013Q3

REPORT INFORMATION
  Report Type: Spontaneous
  Country: GB (occurrence: GB)
  Receive Date: 20130926
  Receipt Date: 20130926
  Transmission Date: 20140515
  Serious: Yes (Other)
  Sender: FDA-Public Use
  Company Number: GB-TEVA-433277ISR

PATIENT
  Sex: Male

DRUGS (3)
  1. TRAZODONE [Suspect]
     Indication: ANXIETY
     Dosage: DOSE: UP TO 200 MG
     Route: 048
     Dates: start: 200906
  2. RANITIDINE [Concomitant]
  3. INDAPAMIDE [Concomitant]

REACTIONS (2)
  - Angioedema [Unknown]
  - Urticaria [Unknown]
